FAERS Safety Report 5289245-9 (Version None)
Quarter: 2007Q2

REPORT INFORMATION
  Report Type: 
  Country: None (occurrence: None)
  Receive Date: 20070403
  Receipt Date: 20070403
  Transmission Date: 20071010
  Serious: Yes (Death)
  Sender: FDA-Public Use
  Company Number: None

PATIENT
  Age: 72 Year
  Sex: Male
  Weight: 76.2043 kg

DRUGS (1)
  1. BEVACIZUMAB 100 MG GENENTECH [Suspect]
     Indication: LUNG NEOPLASM MALIGNANT
     Dosage: 1100 MG ONCE IV DRIP
     Route: 041
     Dates: start: 20070321, end: 20070321

REACTIONS (3)
  - HAEMOGLOBIN DECREASED [None]
  - HAEMOPTYSIS [None]
  - SUDDEN DEATH [None]
